FAERS Safety Report 4994897-4 (Version None)
Quarter: 2006Q2

REPORT INFORMATION
  Report Type: 
  Country: None (occurrence: None)
  Receive Date: 20060508
  Receipt Date: 20060426
  Transmission Date: 20061013
  Serious: Yes (Other)
  Sender: FDA-Public Use
  Company Number: ES-AVENTIS-200612433EU

PATIENT
  Age: 51 Year
  Sex: Female
  Weight: 91 kg

DRUGS (2)
  1. ELORGAN [Suspect]
     Indication: ERYTHEMA
     Route: 048
     Dates: start: 20051010, end: 20051011
  2. LEVOTHROID [Concomitant]
     Route: 048
     Dates: start: 20000911

REACTIONS (5)
  - COORDINATION ABNORMAL [None]
  - DYSPNOEA [None]
  - NERVOUSNESS [None]
  - TACHYCARDIA [None]
  - TREMOR [None]
